FAERS Safety Report 5211464-8 (Version None)
Quarter: 2007Q1

REPORT INFORMATION
  Report Type: 
  Country: None (occurrence: None)
  Receive Date: 20070112
  Receipt Date: 20070102
  Transmission Date: 20070707
  Serious: Yes (Death)
  Sender: FDA-Public Use
  Company Number: 2005S1000229

PATIENT
  Age: 52 Year
  Sex: Female

DRUGS (4)
  1. CUBICIN [Suspect]
     Indication: ENDOCARDITIS STAPHYLOCOCCAL
     Dosage: 6 MG/KG; Q48H; IV
     Route: 042
     Dates: start: 20050101, end: 20050101
  2. HEPARIN [Concomitant]
  3. VANCOMYCIN [Concomitant]
  4. CALCIUM CHANNEL BLOCKER [Concomitant]

REACTIONS (9)
  - ANAEMIA [None]
  - ANTIPHOSPHOLIPID ANTIBODIES [None]
  - DEVICE RELATED INFECTION [None]
  - INTERNATIONAL NORMALISED RATIO INCREASED [None]
  - NO THERAPEUTIC RESPONSE [None]
  - PACEMAKER COMPLICATION [None]
  - POST PROCEDURAL COMPLICATION [None]
  - PROTHROMBIN TIME PROLONGED [None]
  - REFUSAL OF TREATMENT BY PATIENT [None]
